FAERS Safety Report 8288013-3 (Version None)
Quarter: 2012Q2

REPORT INFORMATION
  Report Type: 
  Country: None (occurrence: None)
  Receive Date: 20120416
  Receipt Date: 20120409
  Transmission Date: 20120825
  Serious: Yes (Hospitalization)
  Sender: FDA-Public Use
  Company Number: BR-GLAXOSMITHKLINE-A0973442A

PATIENT
  Age: 30 Year
  Sex: Male

DRUGS (1)
  1. RANITIDINE [Suspect]
     Indication: ULCER
     Route: 048
     Dates: start: 19990101, end: 20120301

REACTIONS (2)
  - HEPATIC INFECTION [None]
  - ABDOMINAL PAIN UPPER [None]
